FAERS Safety Report 14914796 (Version 1)
Quarter: 2018Q2

REPORT INFORMATION
  Report Type: Spontaneous
  Country: KZ (occurrence: KZ)
  Receive Date: 20180518
  Receipt Date: 20180518
  Transmission Date: 20180711
  Serious: Yes (Death)
  Sender: FDA-Public Use
  Company Number: KZ-JNJFOC-20180524699

PATIENT
  Age: 54 Year
  Sex: Male

DRUGS (2)
  1. XARELTO [Suspect]
     Active Substance: RIVAROXABAN
     Indication: PRODUCT USED FOR UNKNOWN INDICATION
     Route: 048
  2. TORASEMIDE [Concomitant]
     Active Substance: TORSEMIDE
     Route: 065

REACTIONS (2)
  - Disseminated intravascular coagulation [Fatal]
  - Haemoptysis [Fatal]

NARRATIVE: CASE EVENT DATE: 20180404
